FAERS Safety Report 4659946-1 (Version None)
Quarter: 2005Q2

REPORT INFORMATION
  Report Type: 
  Country: None (occurrence: None)
  Receive Date: 20050510
  Receipt Date: 20050426
  Transmission Date: 20051028
  Serious: Yes (Hospitalization, Other)
  Sender: FDA-Public Use
  Company Number: 2005066930

PATIENT
  Age: 65 Year
  Sex: Female
  Weight: 79.3795 kg

DRUGS (9)
  1. AROMASIN [Suspect]
     Indication: BREAST CANCER
     Dosage: 25 MG (25 MG, DAILY), ORAL
     Route: 048
     Dates: start: 20040709
  2. METOPROLOL [Concomitant]
  3. DYAZIDE [Concomitant]
  4. MONTELUKAST SODIUM (MONTELUKAST SODIUM) [Concomitant]
  5. WELCHOL [Concomitant]
  6. CITRACAL + D (CALCIUM CITRATE, ERGOCALCIFEROL) [Concomitant]
  7. ASCORBIC ACID [Concomitant]
  8. GLUCOSAMINE (GLUCOSAMINE) [Concomitant]
  9. ASPIRIN [Concomitant]

REACTIONS (13)
  - ABDOMINAL DISTENSION [None]
  - CIRCADIAN RHYTHM SLEEP DISORDER [None]
  - FALL [None]
  - FATIGUE [None]
  - HEPATIC ENZYME INCREASED [None]
  - IMPAIRED WORK ABILITY [None]
  - LIMB INJURY [None]
  - LOSS OF CONSCIOUSNESS [None]
  - LUNG INFECTION [None]
  - MYALGIA [None]
  - SKIN CANCER [None]
  - TENDONITIS [None]
  - TOOTH EROSION [None]
